FAERS Safety Report 8803250 (Version 1)
Quarter: 2012Q4

REPORT INFORMATION
  Report Type: 
  Country: BR (occurrence: BR)
  Receive Date: 20120924
  Receipt Date: 20120924
  Transmission Date: 20130627
  Serious: Yes (Other)
  Sender: FDA-Public Use
  Company Number: BR-JNJFOC-20120906836

PATIENT
  Age: 22 Year
  Sex: Male
  Weight: 66 kg

DRUGS (2)
  1. REMICADE [Suspect]
     Indication: CROHN^S DISEASE
     Route: 042
     Dates: start: 20120905
  2. AZATHIOPRINE [Concomitant]
     Route: 065

REACTIONS (5)
  - Rash [Unknown]
  - Cough [Unknown]
  - Pruritus [Unknown]
  - Swelling [Unknown]
  - Infusion related reaction [Unknown]
